FAERS Safety Report 11844902 (Version 1)
Quarter: 2015Q4

REPORT INFORMATION
  Report Type: Spontaneous
  Country: US (occurrence: None)
  Receive Date: 20151216
  Receipt Date: 20151216
  Transmission Date: 20160305
  Serious: Yes (Other)
  Sender: FDA-Public Use
  Company Number: None

PATIENT
  Age: 33 Year
  Sex: Male
  Weight: 115.67 kg

DRUGS (7)
  1. TOBRADEX [Concomitant]
     Active Substance: DEXAMETHASONE\TOBRAMYCIN
  2. LOTEMAX [Concomitant]
     Active Substance: LOTEPREDNOL ETABONATE
  3. DUREZOL [Concomitant]
     Active Substance: DIFLUPREDNATE
  4. MITOMYCIN 0.02% SURGERY PHARMACY SERVICES [Suspect]
     Active Substance: MITOMYCIN
     Indication: PROPHYLAXIS
     Dosage: 14 SECOND APPLICATION ONCE TOPICAL
     Route: 061
     Dates: start: 20150805
  5. ILEVRO [Concomitant]
     Active Substance: NEPAFENAC
  6. BESIVANCE [Concomitant]
     Active Substance: BESIFLOXACIN
  7. MITOMYCIN 0.02% SURGERY PHARMACY SERVICES [Suspect]
     Active Substance: MITOMYCIN
     Indication: CORNEAL OPACITY
     Dosage: 14 SECOND APPLICATION ONCE TOPICAL
     Route: 061
     Dates: start: 20150805

REACTIONS (3)
  - Inflammation [None]
  - Disease recurrence [None]
  - Corneal erosion [None]

NARRATIVE: CASE EVENT DATE: 20150805
